FAERS Safety Report 17268511 (Version 2)
Quarter: 2020Q2

REPORT INFORMATION
  Report Type: Report from Study
  Country: GB (occurrence: GB)
  Receive Date: 20200114
  Receipt Date: 20200409
  Transmission Date: 20200713
  Serious: Yes (Other)
  Sender: FDA-Public Use
  Company Number: GB-JNJFOC-20200116364

PATIENT
  Sex: Female

DRUGS (2)
  1. STELARA [Suspect]
     Active Substance: USTEKINUMAB
     Indication: PSORIASIS
     Dosage: 45MG/0.5ML
     Route: 058
     Dates: start: 20150513
  2. STELARA [Suspect]
     Active Substance: USTEKINUMAB
     Dosage: 45 MG/ 0.5 ML
     Route: 058

REACTIONS (3)
  - Blister [Unknown]
  - Breast cancer [Unknown]
  - Skin haemorrhage [Unknown]
